FAERS Safety Report 7396230-X (Version None)
Quarter: 2011Q2

REPORT INFORMATION
  Report Type: 
  Country: None (occurrence: None)
  Receive Date: 20110406
  Receipt Date: 20110328
  Transmission Date: 20111010
  Serious: Yes (Hospitalization)
  Sender: FDA-Public Use
  Company Number: FR-NOVOPROD-325900

PATIENT
  Age: 85 Year
  Sex: Female

DRUGS (8)
  1. NOVOMIX 30 FLEXPEN [Suspect]
     Indication: TYPE 2 DIABETES MELLITUS
     Dosage: 88 IU, QD
     Route: 058
  2. NOVORAPID [Suspect]
     Indication: TYPE 2 DIABETES MELLITUS
     Dosage: 14 IU, QD
     Route: 058
  3. CELESTENE                          /00008501/ [Concomitant]
  4. TAHOR [Concomitant]
  5. COVERSYL                           /00790702/ [Concomitant]
  6. LASIX [Concomitant]
  7. TRINODERM [Concomitant]
     Dosage: 5MG/24HOURS
  8. PREVISCAN                          /00261401/ [Concomitant]

REACTIONS (4)
  - FALL [None]
  - CONCUSSION [None]
  - HYPOGLYCAEMIA [None]
  - FACIAL BONES FRACTURE [None]
